FAERS Safety Report 13142392 (Version 1)
Quarter: 2017Q1

REPORT INFORMATION
  Report Type: Spontaneous
  Country: US (occurrence: US)
  Receive Date: 20170123
  Receipt Date: 20170123
  Transmission Date: 20170428
  Serious: No
  Sender: FDA-Public Use
  Company Number: US-HERITAGE PHARMACEUTICALS-2016HTG00118

PATIENT
  Age: 62 Year
  Sex: Female
  Weight: 67.12 kg

DRUGS (4)
  1. NYSTATIN. [Suspect]
     Active Substance: NYSTATIN
     Indication: CANDIDA INFECTION
     Dosage: 1 TABLETS, 2X/DAY
     Route: 048
     Dates: start: 201601, end: 201603
  2. NYSTATIN. [Suspect]
     Active Substance: NYSTATIN
     Dosage: 2 TABLETS, 2X/DAY
     Route: 048
     Dates: start: 201603, end: 20160422
  3. ESTROGEN PATCH SUPPLEMENT [Concomitant]
     Dosage: UNK
  4. UNSPECIFIED BRAND THYROID MEDICATION [Concomitant]
     Dosage: UNK

REACTIONS (6)
  - Abdominal distension [Not Recovered/Not Resolved]
  - Gluten sensitivity [Not Recovered/Not Resolved]
  - Abdominal pain upper [Not Recovered/Not Resolved]
  - Irritability [Not Recovered/Not Resolved]
  - Rash [Not Recovered/Not Resolved]
  - Gastrointestinal disorder [Not Recovered/Not Resolved]

NARRATIVE: CASE EVENT DATE: 201603
